FAERS Safety Report 20651878 (Version 2)
Quarter: 2022Q2

REPORT INFORMATION
  Report Type: Spontaneous
  Country: US (occurrence: US)
  Receive Date: 20220330
  Receipt Date: 20220401
  Transmission Date: 20220721
  Serious: Yes (Life-Threatening, Other)
  Sender: FDA-Public Use
  Company Number: US-NOVARTISTESTPH-NVSC2022US071342

PATIENT
  Age: 74 Year
  Sex: Female
  Weight: 42.18 kg

DRUGS (1)
  1. EXELON PATCH [Suspect]
     Active Substance: RIVASTIGMINE
     Indication: Dementia Alzheimer^s type
     Dosage: 9.5 MG, QD
     Route: 062
     Dates: start: 20211215, end: 20220321

REACTIONS (2)
  - Syncope [Recovered/Resolved with Sequelae]
  - Hallucination [Recovered/Resolved]

NARRATIVE: CASE EVENT DATE: 20220320
